FAERS Safety Report 7432242-5 (Version None)
Quarter: 2011Q2

REPORT INFORMATION
  Report Type: 
  Country: None (occurrence: None)
  Receive Date: 20110422
  Receipt Date: 20110407
  Transmission Date: 20111010
  Serious: No
  Sender: FDA-Public Use
  Company Number: US-B.I. PHARMACEUTICALS,INC./RIDGEFIELD-2011-BP-10209BP

PATIENT
  Sex: Female

DRUGS (7)
  1. TOPROL-XL [Concomitant]
     Indication: HYPERTENSION
  2. LIPITOR [Concomitant]
     Indication: BLOOD CHOLESTEROL INCREASED
  3. POTASSIUM [Concomitant]
  4. SIMVASTATIN [Concomitant]
     Indication: BLOOD CHOLESTEROL INCREASED
  5. PRADAXA [Suspect]
     Indication: ATRIAL FIBRILLATION
     Dosage: 300 MG
     Route: 048
     Dates: start: 20110201
  6. LORAZEPAM [Concomitant]
     Indication: INSOMNIA
  7. LEXAPRO [Concomitant]
     Indication: DEPRESSION

REACTIONS (1)
  - ARTHRITIS [None]
